FAERS Safety Report 14355671 (Version 1)
Quarter: 2018Q1

REPORT INFORMATION
  Report Type: Spontaneous
  Country: AU (occurrence: AU)
  Receive Date: 20180105
  Receipt Date: 20180105
  Transmission Date: 20180509
  Serious: Yes (Hospitalization, Other)
  Sender: FDA-Public Use
  Company Number: AU-APOTEX-2017AP023780

PATIENT
  Age: 51 Year
  Sex: Female

DRUGS (8)
  1. RISPERIDONE. [Suspect]
     Active Substance: RISPERIDONE
     Indication: SCHIZOAFFECTIVE DISORDER
     Dosage: UNK
     Route: 065
  2. AMISULPRIDE [Suspect]
     Active Substance: AMISULPRIDE
     Dosage: 100 MG, UNK
     Route: 065
  3. AMISULPRIDE [Suspect]
     Active Substance: AMISULPRIDE
     Dosage: 75 MG, UNK
     Route: 065
  4. AMISULPRIDE [Suspect]
     Active Substance: AMISULPRIDE
     Dosage: 50 MG, Q.H.S.
     Route: 065
  5. ARIPIPRAZOLE. [Suspect]
     Active Substance: ARIPIPRAZOLE
     Indication: SCHIZOAFFECTIVE DISORDER
     Dosage: 5 MG, Q.AM
     Route: 065
  6. AMISULPRIDE [Suspect]
     Active Substance: AMISULPRIDE
     Indication: SCHIZOAFFECTIVE DISORDER
     Dosage: 25 MG, Q.H.S.
     Route: 065
  7. DULOXETINE. [Suspect]
     Active Substance: DULOXETINE
     Indication: SCHIZOAFFECTIVE DISORDER
     Dosage: UNK
     Route: 065
  8. ARIPIPRAZOLE. [Suspect]
     Active Substance: ARIPIPRAZOLE
     Dosage: 3.33 MG, UNK
     Route: 065

REACTIONS (12)
  - Gambling disorder [Recovered/Resolved]
  - Insomnia [Recovered/Resolved]
  - Disease recurrence [Unknown]
  - Schizoaffective disorder [Unknown]
  - Psychomotor hyperactivity [Recovered/Resolved]
  - Energy increased [Recovered/Resolved]
  - Paranoia [Unknown]
  - Sedation [Unknown]
  - Impulse-control disorder [Recovered/Resolved]
  - Euphoric mood [Recovered/Resolved]
  - Dissociation [Recovered/Resolved]
  - Treatment noncompliance [Unknown]
